FAERS Safety Report 10032248 (Version 1)
Quarter: 2014Q1

REPORT INFORMATION
  Report Type: Spontaneous
  Country: US (occurrence: US)
  Receive Date: 20140324
  Receipt Date: 20140324
  Transmission Date: 20141002
  Serious: Yes (Hospitalization, Other)
  Sender: FDA-Public Use
  Company Number: US-ELI_LILLY_AND_COMPANY-US201403006235

PATIENT
  Age: 55 Year
  Sex: Male
  Weight: 97.96 kg

DRUGS (2)
  1. HUMALOG LISPRO [Suspect]
     Indication: PRODUCT USED FOR UNKNOWN INDICATION
     Route: 058
  2. NOVOLOG [Concomitant]
     Route: 058

REACTIONS (6)
  - Diabetic ketoacidosis [Unknown]
  - Blood glucose increased [Unknown]
  - Convulsion [Unknown]
  - Thirst [Unknown]
  - Pain [Unknown]
  - Muscle spasms [Unknown]
